FAERS Safety Report 4578724-5 (Version None)
Quarter: 2005Q1

REPORT INFORMATION
  Report Type: 
  Country: None (occurrence: None)
  Receive Date: 20050211
  Receipt Date: 20050105
  Transmission Date: 20050727
  Serious: Yes (Hospitalization)
  Sender: FDA-Public Use
  Company Number: FR-GLAXOSMITHKLINE-B0363994A

PATIENT
  Age: 76 Year
  Sex: Female
  Weight: 50 kg

DRUGS (8)
  1. AUGMENTIN '125' [Suspect]
     Indication: SUPERINFECTION LUNG
     Dosage: 1G THREE TIMES PER DAY
     Route: 048
     Dates: start: 20040807, end: 20040814
  2. PYOSTACINE [Suspect]
     Dosage: 1G TWICE PER DAY
     Route: 048
     Dates: start: 20040901, end: 20040904
  3. CIPROFLOXACIN HCL [Concomitant]
     Indication: SUPERINFECTION LUNG
     Dosage: 500MG TWICE PER DAY
     Route: 048
     Dates: start: 20040301, end: 20040315
  4. ORELOX [Concomitant]
     Indication: SUPERINFECTION LUNG
     Dosage: 200MG TWICE PER DAY
     Route: 048
     Dates: start: 20031201, end: 20031208
  5. BIRODOGYL [Concomitant]
     Indication: TOOTH EXTRACTION
     Dosage: 1UNIT THREE TIMES PER DAY
     Route: 048
     Dates: start: 20040806, end: 20040812
  6. TIAPROFENIC ACID [Concomitant]
     Indication: TOOTH EXTRACTION
     Dosage: 25MG THREE TIMES PER DAY
     Route: 048
     Dates: start: 20040806, end: 20040811
  7. LEVOCETIRIZINE [Concomitant]
     Indication: HYPERSENSITIVITY
     Dosage: 5MG PER DAY
     Route: 065
  8. ATARAX [Concomitant]
     Indication: HYPERSENSITIVITY
     Dosage: 50MG PER DAY
     Route: 065

REACTIONS (9)
  - BLOOD LACTATE DEHYDROGENASE INCREASED [None]
  - DERMATITIS EXFOLIATIVE [None]
  - GENERAL PHYSICAL HEALTH DETERIORATION [None]
  - HEAT RASH [None]
  - LYMPHADENOPATHY [None]
  - OEDEMA [None]
  - PERIORBITAL OEDEMA [None]
  - RASH PRURITIC [None]
  - SKIN EXFOLIATION [None]
